FAERS Safety Report 4851046-0 (Version None)
Quarter: 2005Q4

REPORT INFORMATION
  Report Type: 
  Country: None (occurrence: None)
  Receive Date: 20051212
  Receipt Date: 20050414
  Transmission Date: 20060501
  Serious: Yes (Hospitalization, Disabling)
  Sender: FDA-Public Use
  Company Number: US-MERCK-0504USA02302

PATIENT
  Age: 26 Year
  Sex: Female
  Weight: 82 kg

DRUGS (7)
  1. VIOXX [Suspect]
     Route: 048
     Dates: start: 19990101
  2. ULTRAM [Concomitant]
     Route: 065
  3. LORATADINE [Concomitant]
     Route: 065
  4. THEO-DUR [Concomitant]
     Route: 065
  5. BENADRYL [Concomitant]
     Route: 065
  6. PROVENTIL [Concomitant]
     Route: 065
  7. DARVOCET-N 100 [Concomitant]
     Route: 065

REACTIONS (18)
  - ABDOMINAL PAIN UPPER [None]
  - ANGINA UNSTABLE [None]
  - CARDIAC MURMUR [None]
  - COLLAGEN-VASCULAR DISEASE [None]
  - CONSTIPATION [None]
  - CORONARY ARTERY DISEASE [None]
  - CORONARY ARTERY REOCCLUSION [None]
  - DRUG INEFFECTIVE [None]
  - DYSPEPSIA [None]
  - ELECTROCARDIOGRAM T WAVE ABNORMAL [None]
  - HYPERLIPIDAEMIA [None]
  - IRRITABLE BOWEL SYNDROME [None]
  - MYOCARDIAL INFARCTION [None]
  - NERVOUS SYSTEM DISORDER [None]
  - OEDEMA PERIPHERAL [None]
  - RESPIRATORY DISORDER [None]
  - SHOCK [None]
  - UTERINE DISORDER [None]
